FAERS Safety Report 6294226-2 (Version None)
Quarter: 2009Q3

REPORT INFORMATION
  Report Type: 
  Country: None (occurrence: None)
  Receive Date: 20090803
  Receipt Date: 20090317
  Transmission Date: 20100115
  Serious: No
  Sender: FDA-Public Use
  Company Number: A0773795A

PATIENT
  Age: 41 Year
  Sex: Male

DRUGS (1)
  1. NICORETTE (MINT) [Suspect]
     Dates: start: 20090309, end: 20090314

REACTIONS (4)
  - GINGIVAL DISORDER [None]
  - OEDEMA MOUTH [None]
  - ORAL PRURITUS [None]
  - THROAT IRRITATION [None]
